FAERS Safety Report 4803004-X (Version None)
Quarter: 2005Q4

REPORT INFORMATION
  Report Type: 
  Country: None (occurrence: None)
  Receive Date: 20051017
  Receipt Date: 20051017
  Transmission Date: 20060501
  Serious: No
  Sender: FDA-Public Use
  Company Number: None

PATIENT
  Sex: Female
  Weight: 90.72 kg

DRUGS (12)
  1. CANCIDAS [Suspect]
     Indication: CANDIDURIA
     Dosage: 70 MG X 1 IV; 50 MG DAILY IV
     Route: 042
     Dates: start: 20051006, end: 20051006
  2. CANCIDAS [Suspect]
     Indication: CANDIDURIA
     Dosage: 70 MG X 1 IV; 50 MG DAILY IV
     Route: 042
     Dates: start: 20051007, end: 20051009
  3. AMPHOTERICIN B [Concomitant]
  4. DIFLUCAN [Concomitant]
  5. ASPIRIN [Concomitant]
  6. GEMFIBROZIL [Concomitant]
  7. ATENOLOL [Concomitant]
  8. SYNTHROID [Concomitant]
  9. MULTIVITAMIN W/ MINERALS [Concomitant]
  10. LASIX [Concomitant]
  11. LEVAQUIN [Concomitant]
  12. VORICONAZOLE [Concomitant]

REACTIONS (1)
  - THROMBOCYTOPENIA [None]
